FAERS Safety Report 4475158-9 (Version None)
Quarter: 2004Q4

REPORT INFORMATION
  Report Type: 
  Country: None (occurrence: None)
  Receive Date: 20041012
  Receipt Date: 20040928
  Transmission Date: 20050328
  Serious: Yes (Death, Hospitalization)
  Sender: FDA-Public Use
  Company Number: 032-0981-M0000079

PATIENT
  Age: 75 Year
  Sex: Male
  Weight: 67 kg

DRUGS (6)
  1. ATORVASTATIN (ATORVASTATIN) [Suspect]
     Indication: CORONARY ARTERY DISEASE
     Dosage: SEE IMAGE
     Route: 048
     Dates: start: 19990709, end: 19990902
  2. ATORVASTATIN (ATORVASTATIN) [Suspect]
     Indication: CORONARY ARTERY DISEASE
     Dosage: SEE IMAGE
     Route: 048
     Dates: start: 19990903, end: 20000503
  3. ASPIRIN [Concomitant]
  4. LISINOPRIL [Concomitant]
  5. FUROSEMIDE [Concomitant]
  6. NICOTINE [Concomitant]

REACTIONS (3)
  - ADENOCARCINOMA PANCREAS [None]
  - ANOREXIA [None]
  - COMA [None]
